FAERS Safety Report 9605237 (Version 1)
Quarter: 2013Q4

REPORT INFORMATION
  Report Type: Spontaneous
  Country: US (occurrence: US)
  Receive Date: 20131008
  Receipt Date: 20131008
  Transmission Date: 20140711
  Serious: Yes (Other)
  Sender: FDA-Public Use
  Company Number: US-GLAXOSMITHKLINE-A1043912A

PATIENT
  Age: 60 Year
  Sex: Female

DRUGS (3)
  1. ADVAIR [Suspect]
     Indication: ASTHMA
     Dosage: 1PUFF PER DAY
     Route: 055
  2. NEXIUM [Concomitant]
  3. CLARITIN [Concomitant]

REACTIONS (4)
  - Atrial fibrillation [Unknown]
  - Heart rate increased [Unknown]
  - Chest discomfort [Unknown]
  - Incorrect dose administered [Unknown]
